FAERS Safety Report 4424432-0 (Version None)
Quarter: 2004Q3

REPORT INFORMATION
  Report Type: 
  Country: None (occurrence: None)
  Receive Date: 20040812
  Receipt Date: 20040728
  Transmission Date: 20050211
  Serious: Yes (Hospitalization)
  Sender: FDA-Public Use
  Company Number: GB-JNJFOC-20040607996

PATIENT
  Sex: Male

DRUGS (5)
  1. RISPERDAL [Suspect]
  2. RISPERDAL [Suspect]
  3. RISPERDAL [Suspect]
  4. FLUORIDE [Concomitant]
  5. ACETAMINOPHEN [Concomitant]

REACTIONS (3)
  - CONDITION AGGRAVATED [None]
  - DRUG EFFECT DECREASED [None]
  - PHOTOSENSITIVE RASH [None]
